FAERS Safety Report 10766978 (Version 2)
Quarter: 2015Q1

REPORT INFORMATION
  Report Type: Report from Study
  Country: US (occurrence: US)
  Receive Date: 20150205
  Receipt Date: 20150210
  Transmission Date: 20150721
  Serious: No
  Sender: FDA-Public Use
  Company Number: US-ASTRAZENECA-2015SE08857

PATIENT
  Age: 63 Year
  Sex: Female
  Weight: 125.2 kg

DRUGS (17)
  1. RANITIDINE [Concomitant]
     Active Substance: RANITIDINE\RANITIDINE HYDROCHLORIDE
     Indication: GASTROOESOPHAGEAL REFLUX DISEASE
     Route: 048
     Dates: start: 2013
  2. CALCIUM WITH MAGNESIUM ZINC AND VITAMIN D [Concomitant]
     Indication: DIZZINESS
     Route: 048
     Dates: start: 1995
  3. BETA CARETINE [Concomitant]
     Route: 048
     Dates: start: 2006
  4. VALSARTAX [Concomitant]
     Route: 048
     Dates: start: 2011
  5. VENLAFAXINE [Concomitant]
     Active Substance: VENLAFAXINE HYDROCHLORIDE
     Indication: DEPRESSION
     Route: 048
     Dates: start: 2011
  6. HYDROCODONE 5/325 [Concomitant]
     Indication: ARTHROPATHY
     Route: 048
     Dates: start: 2013
  7. NEXIUM [Suspect]
     Active Substance: ESOMEPRAZOLE MAGNESIUM
     Indication: GASTROOESOPHAGEAL REFLUX DISEASE
     Route: 048
     Dates: start: 2009
  8. PRIMIDONE. [Concomitant]
     Active Substance: PRIMIDONE
     Indication: TREMOR
     Route: 048
     Dates: start: 2011
  9. PROPAFENONE. [Concomitant]
     Active Substance: PROPAFENONE
     Indication: BLOOD FIBRINOGEN
     Route: 048
     Dates: start: 2013
  10. PRADAXA [Concomitant]
     Active Substance: DABIGATRAN ETEXILATE MESYLATE
     Indication: THROMBOSIS
     Route: 048
     Dates: start: 2011, end: 2014
  11. MULTI VITAMIN [Concomitant]
     Active Substance: VITAMINS
     Route: 048
     Dates: start: 1995
  12. QUETIAPINE [Suspect]
     Active Substance: QUETIAPINE
     Indication: SLEEP DISORDER
     Route: 048
     Dates: start: 2011
  13. PRAMIPEXOLE [Concomitant]
     Active Substance: PRAMIPEXOLE
     Indication: RESTLESS LEGS SYNDROME
     Route: 048
     Dates: start: 2011
  14. UNSPECIFIED UNK STOOL SOFTNER [Concomitant]
     Indication: CONSTIPATION
     Route: 048
     Dates: start: 2013
  15. SPIRONOLACTONE. [Concomitant]
     Active Substance: SPIRONOLACTONE
     Indication: DIURETIC THERAPY
     Route: 048
     Dates: start: 2007
  16. DILTIAZEM [Concomitant]
     Active Substance: DILTIAZEM
     Indication: CARDIAC DISORDER
     Route: 048
     Dates: start: 2007
  17. BABY ASPIRIN [Concomitant]
     Active Substance: ASPIRIN
     Indication: CARDIOMEGALY
     Route: 048
     Dates: start: 2014

REACTIONS (8)
  - Constipation [Unknown]
  - Drug dose omission [Unknown]
  - Intentional product use issue [Unknown]
  - Hypokinesia [Unknown]
  - Eructation [Unknown]
  - Dizziness [Unknown]
  - Dyspepsia [Unknown]
  - Reading disorder [Unknown]

NARRATIVE: CASE EVENT DATE: 2009
